FAERS Safety Report 22342574 (Version 1)
Quarter: 2023Q2

REPORT INFORMATION
  Report Type: Report from Study
  Country: US (occurrence: None)
  Receive Date: 20230519
  Receipt Date: 20230519
  Transmission Date: 20230722
  Serious: Yes (Hospitalization, Other)
  Sender: FDA-Public Use
  Company Number: US-Merck Healthcare KGaA-9401941

PATIENT
  Age: 61 Year
  Sex: Female

DRUGS (1)
  1. MAVENCLAD [Suspect]
     Active Substance: CLADRIBINE
     Indication: Multiple sclerosis
     Route: 048
     Dates: start: 20210924

REACTIONS (5)
  - Thyroid disorder [Unknown]
  - Dizziness [Unknown]
  - Gait disturbance [Unknown]
  - Spinal compression fracture [Unknown]
  - Fall [Unknown]

NARRATIVE: CASE EVENT DATE: 20230301
